FAERS Safety Report 10616900 (Version 3)
Quarter: 2015Q2

REPORT INFORMATION
  Report Type: Report from Study
  Country: DE (occurrence: DE)
  Receive Date: 20141201
  Receipt Date: 20150611
  Transmission Date: 20150821
  Serious: Yes (Other)
  Sender: FDA-Public Use
  Company Number: DE-CELGENE-DEU-2014110941

PATIENT
  Age: 34 Year
  Sex: Male
  Weight: 70.4 kg

DRUGS (2)
  1. AZACITIDINE. [Suspect]
     Active Substance: AZACITIDINE
     Indication: ACUTE MYELOID LEUKAEMIA
     Route: 058
     Dates: start: 20131212, end: 20131217
  2. REVLIMID [Suspect]
     Active Substance: LENALIDOMIDE
     Indication: PRODUCT USED FOR UNKNOWN INDICATION
     Route: 048
     Dates: start: 20131218

REACTIONS (3)
  - Staphylococcal infection [Recovered/Resolved]
  - White blood cell count increased [Unknown]
  - No therapeutic response [Unknown]

NARRATIVE: CASE EVENT DATE: 20131214
